FAERS Safety Report 5910697-2 (Version None)
Quarter: 2008Q4

REPORT INFORMATION
  Report Type: 
  Country: None (occurrence: None)
  Receive Date: 20081006
  Receipt Date: 20081006
  Transmission Date: 20090506
  Serious: Yes (Hospitalization)
  Sender: FDA-Public Use
  Company Number: None

PATIENT
  Age: 28 Year
  Sex: Female

DRUGS (12)
  1. SOLU-MEDROL [Suspect]
     Indication: IDIOPATHIC THROMBOCYTOPENIC PURPURA
     Dates: start: 20061105, end: 20061108
  2. PREDNISONE [Suspect]
     Indication: IDIOPATHIC THROMBOCYTOPENIC PURPURA
     Dosage: 60 MG DAILY PO
     Route: 048
     Dates: start: 20061108, end: 20061130
  3. GABAPENTIN [Concomitant]
  4. VITAMIN [Concomitant]
  5. BIRTH CONTROL PILL [Concomitant]
  6. .. [Concomitant]
  7. ZYRTEC [Concomitant]
  8. ALBUTEROL [Concomitant]
  9. ADVAIR DISKUS 100/50 [Concomitant]
  10. ENDOCET [Concomitant]
  11. NEXIUM [Concomitant]
  12. HYDROCHLOROTHIAZIDE [Concomitant]

REACTIONS (3)
  - AGITATION [None]
  - MANIA [None]
  - PSYCHOTIC DISORDER [None]
